FAERS Safety Report 12629215 (Version 1)
Quarter: 2016Q3

REPORT INFORMATION
  Report Type: Spontaneous
  Country: US (occurrence: None)
  Receive Date: 20160805
  Receipt Date: 20160805
  Transmission Date: 20161109
  Serious: Yes (Other)
  Sender: FDA-Public Use
  Company Number: None

PATIENT
  Sex: Female

DRUGS (1)
  1. MYCOPHENOLATE 500 MG UNKNOWN [Suspect]
     Active Substance: MYCOPHENOLIC ACID
     Indication: RHEUMATOID ARTHRITIS
     Dosage: 500 MG 2 TIMES/ DAY
     Route: 048
     Dates: start: 20160623

REACTIONS (3)
  - Inappropriate schedule of drug administration [None]
  - Drug dose omission [None]
  - Seizure [None]
